FAERS Safety Report 12924636 (Version 1)
Quarter: 2016Q4

REPORT INFORMATION
  Report Type: Spontaneous
  Country: US (occurrence: US)
  Receive Date: 20161108
  Receipt Date: 20161108
  Transmission Date: 20170207
  Serious: Yes (Hospitalization)
  Sender: FDA-Public Use
  Company Number: US-SA-2016SA199556

PATIENT
  Age: 85 Year
  Sex: Female

DRUGS (7)
  1. TOUJEO [Suspect]
     Active Substance: INSULIN GLARGINE
     Indication: TYPE 2 DIABETES MELLITUS
     Dosage: DOSE:8 UNIT(S)
     Route: 065
     Dates: end: 201610
  2. TOUJEO [Suspect]
     Active Substance: INSULIN GLARGINE
     Indication: TYPE 2 DIABETES MELLITUS
     Dosage: DOSE:8 UNIT(S)
     Route: 065
     Dates: start: 201610, end: 201610
  3. SOLOSTAR [Concomitant]
     Active Substance: DEVICE
     Indication: TYPE 2 DIABETES MELLITUS
     Dates: end: 201610
  4. SOLOSTAR [Concomitant]
     Active Substance: DEVICE
  5. HUMALOG [Concomitant]
     Active Substance: INSULIN LISPRO
  6. SOLOSTAR [Concomitant]
     Active Substance: DEVICE
     Indication: TYPE 2 DIABETES MELLITUS
     Dates: start: 201610, end: 201610
  7. LANTUS SOLOSTAR [Concomitant]
     Active Substance: INSULIN GLARGINE
     Dosage: DOSE:5 UNIT(S)

REACTIONS (4)
  - Oedema peripheral [Unknown]
  - Drug dose omission [Unknown]
  - Abdominal hernia [Unknown]
  - Atrial fibrillation [Unknown]

NARRATIVE: CASE EVENT DATE: 2016
